FAERS Safety Report 8045436-5 (Version None)
Quarter: 2012Q1

REPORT INFORMATION
  Report Type: 
  Country: None (occurrence: None)
  Receive Date: 20120113
  Receipt Date: 20120103
  Transmission Date: 20120608
  Serious: Yes (Hospitalization, Disabling, Other)
  Sender: FDA-Public Use
  Company Number: DE-ALLERGAN-1115869US

PATIENT
  Age: 64 Year
  Sex: Male

DRUGS (1)
  1. OZURDEX [Suspect]
     Indication: MACULAR OEDEMA
     Dosage: UNK
     Dates: start: 20111128, end: 20111128

REACTIONS (2)
  - ENDOPHTHALMITIS [None]
  - CATARACT [None]
